FAERS Safety Report 12495357 (Version 1)
Quarter: 2016Q2

REPORT INFORMATION
  Report Type: Spontaneous
  Country: US (occurrence: None)
  Receive Date: 20160623
  Receipt Date: 20160623
  Transmission Date: 20160815
  Serious: Yes (Hospitalization)
  Sender: FDA-Public Use
  Company Number: None

PATIENT
  Age: 57 Year
  Sex: Male
  Weight: 119 kg

DRUGS (1)
  1. BUPROPION. [Suspect]
     Active Substance: BUPROPION
     Route: 048
     Dates: start: 20160108, end: 20160127

REACTIONS (8)
  - Pancreatitis [None]
  - Dizziness [None]
  - Fall [None]
  - Blood sodium decreased [None]
  - Dyskinesia [None]
  - Loss of consciousness [None]
  - Seizure [None]
  - Eye movement disorder [None]

NARRATIVE: CASE EVENT DATE: 20160126
